FAERS Safety Report 5889869-1 (Version None)
Quarter: 2008Q3

REPORT INFORMATION
  Report Type: 
  Country: None (occurrence: None)
  Receive Date: 20080919
  Receipt Date: 20080912
  Transmission Date: 20090109
  Serious: Yes (Hospitalization)
  Sender: FDA-Public Use
  Company Number: US-GENENTECH-267420

PATIENT
  Sex: Female
  Weight: 90.3 kg

DRUGS (29)
  1. BLINDED ANTI-CD40 [Suspect]
     Indication: DIFFUSE LARGE B-CELL LYMPHOMA
     Dosage: 2 MG/KG, SINGLE
     Route: 042
     Dates: start: 20080812, end: 20080812
  2. BLINDED PLACEBO [Suspect]
     Indication: DIFFUSE LARGE B-CELL LYMPHOMA
     Dosage: 2 MG/KG, SINGLE
     Route: 042
     Dates: start: 20080812, end: 20080812
  3. BLINDED ANTI-CD40 [Suspect]
     Dosage: 4 MG/KG, SINGLE
     Route: 042
     Dates: start: 20080814, end: 20080814
  4. BLINDED PLACEBO [Suspect]
     Dosage: 4 MG/KG, SINGLE
     Route: 042
     Dates: start: 20080814, end: 20080814
  5. BLINDED ANTI-CD40 [Suspect]
     Dosage: 8 MG/KG, Q3W
     Route: 042
     Dates: start: 20080820
  6. BLINDED PLACEBO [Suspect]
     Dosage: 8 MG/KG, Q3W
     Route: 042
     Dates: start: 20080820
  7. RITUXAN [Suspect]
     Indication: DIFFUSE LARGE B-CELL LYMPHOMA
     Dosage: 375 MG, Q3W
     Route: 042
     Dates: start: 20080811, end: 20080811
  8. ETOPOSIDE [Suspect]
     Indication: DIFFUSE LARGE B-CELL LYMPHOMA
     Dosage: 206 MG, Q3W
     Route: 042
     Dates: start: 20080813
  9. CARBOPLATIN [Suspect]
     Indication: DIFFUSE LARGE B-CELL LYMPHOMA
     Dosage: 496 MG, Q3W
     Route: 042
     Dates: start: 20080814
  10. IFOSFAMIDE [Suspect]
     Indication: DIFFUSE LARGE B-CELL LYMPHOMA
     Dosage: 1030 MG, Q3W
     Route: 042
     Dates: start: 20080814
  11. FLUOXETINE [Concomitant]
     Indication: DRUG USE FOR UNKNOWN INDICATION
     Dosage: UNK
     Dates: start: 20080812, end: 20080816
  12. HEPARIN SODIUM [Concomitant]
     Indication: DRUG USE FOR UNKNOWN INDICATION
     Dosage: UNK
     Dates: start: 20080812
  13. ACETAMINOPHEN [Concomitant]
     Indication: DRUG USE FOR UNKNOWN INDICATION
     Dosage: UNK
     Dates: start: 20080812, end: 20080815
  14. PANTOPRAZOLE SODIUM [Concomitant]
     Indication: DRUG USE FOR UNKNOWN INDICATION
     Dosage: UNK
     Dates: start: 20080812, end: 20080816
  15. ESZOPICLONE [Concomitant]
     Indication: DRUG USE FOR UNKNOWN INDICATION
     Dosage: UNK
     Dates: start: 20080812, end: 20080815
  16. ALLOPURINOL [Concomitant]
     Indication: DRUG USE FOR UNKNOWN INDICATION
     Dosage: UNK
     Dates: start: 20080813, end: 20080816
  17. MORPHINE [Concomitant]
     Indication: DRUG USE FOR UNKNOWN INDICATION
     Dosage: UNK
     Dates: start: 20080813, end: 20080816
  18. FAMOTIDINE [Concomitant]
     Indication: DRUG USE FOR UNKNOWN INDICATION
     Dosage: UNK
     Dates: start: 20080812, end: 20080815
  19. ALPRAZOLAM [Concomitant]
     Indication: DRUG USE FOR UNKNOWN INDICATION
     Dosage: UNK
     Dates: start: 20080812
  20. DIPHENHYDRAMINE HCL [Concomitant]
     Indication: DRUG USE FOR UNKNOWN INDICATION
     Dosage: UNK
     Dates: start: 20080812, end: 20080812
  21. DIPHENHYDRAMINE HCL [Concomitant]
     Dosage: UNK
     Dates: start: 20080815, end: 20080815
  22. GABAPENTIN [Concomitant]
     Indication: DRUG USE FOR UNKNOWN INDICATION
     Dosage: UNK
     Dates: start: 20080812, end: 20080816
  23. ISOSORBIDE MONONITRATE [Concomitant]
     Indication: DRUG USE FOR UNKNOWN INDICATION
     Dosage: UNK
     Dates: start: 20080812
  24. CLOPIDOGREL BISULFATE [Concomitant]
     Indication: DRUG USE FOR UNKNOWN INDICATION
     Dosage: UNK
     Dates: start: 20080812, end: 20080816
  25. DOCUSATE SODIUM [Concomitant]
     Indication: DRUG USE FOR UNKNOWN INDICATION
     Dosage: UNK
     Dates: start: 20080813, end: 20080816
  26. LISINOPRIL [Concomitant]
     Indication: DRUG USE FOR UNKNOWN INDICATION
     Dosage: UNK
     Dates: start: 20080813, end: 20080816
  27. HYDROMORPHONE HCL [Concomitant]
     Indication: DRUG USE FOR UNKNOWN INDICATION
     Dosage: UNK
     Dates: start: 20080813, end: 20080815
  28. ASPIRIN [Concomitant]
     Indication: DRUG USE FOR UNKNOWN INDICATION
  29. ACETAMINOFEN [Concomitant]
     Indication: DRUG USE FOR UNKNOWN INDICATION
     Dosage: UNK
     Dates: start: 20080812, end: 20080812

REACTIONS (1)
  - DEHYDRATION [None]
